FAERS Safety Report 13350963 (Version 1)
Quarter: 2017Q1

REPORT INFORMATION
  Report Type: Spontaneous
  Country: US (occurrence: US)
  Receive Date: 20170320
  Receipt Date: 20170320
  Transmission Date: 20170429
  Serious: No
  Sender: FDA-Public Use
  Company Number: US-PFIZER INC-2017111751

PATIENT
  Age: 48 Year
  Sex: Female

DRUGS (2)
  1. FASLODEX [Suspect]
     Active Substance: FULVESTRANT
     Dosage: UNK
  2. IBRANCE [Suspect]
     Active Substance: PALBOCICLIB
     Dosage: 125 MG, CYCLIC [TAKE 1 CAPSULE  EVERY DAY FOR 21 CONSECUTIVE DAYS FOLLOWED BY 7 DAYS OFF]
     Route: 048
     Dates: start: 20160929

REACTIONS (3)
  - Alopecia [Unknown]
  - Fatigue [Unknown]
  - Drug administration error [Unknown]
